FAERS Safety Report 11846283 (Version 3)
Quarter: 2016Q1

REPORT INFORMATION
  Report Type: Spontaneous
  Country: JP (occurrence: JP)
  Receive Date: 20151217
  Receipt Date: 20160223
  Transmission Date: 20160526
  Serious: Yes (Death)
  Sender: FDA-Public Use
  Company Number: JP-BAYER-2015-485705

PATIENT
  Age: 83 Year
  Sex: Male
  Weight: 49 kg

DRUGS (8)
  1. OLMETEC [Concomitant]
     Active Substance: OLMESARTAN MEDOXOMIL
     Dosage: DAILY DOSE 10 MG
     Route: 048
     Dates: start: 20150406, end: 20151119
  2. LIPITOR [Concomitant]
     Active Substance: ATORVASTATIN CALCIUM
     Dosage: DAILY DOSE 5 MG
     Route: 048
     Dates: start: 20150108, end: 20151119
  3. BAYASPIRIN [Suspect]
     Active Substance: ASPIRIN
     Indication: ACUTE MYOCARDIAL INFARCTION
     Dosage: 100 MG, QD
     Route: 048
     Dates: start: 20150108, end: 20151119
  4. PRASUGREL [Interacting]
     Active Substance: PRASUGREL
     Dosage: DAILY DOSE 3.750 MG
     Route: 048
     Dates: start: 20150108, end: 20151119
  5. ARTIST [Concomitant]
     Active Substance: CARVEDILOL
     Dosage: DAILY DOSE 2.5 MG
     Route: 048
     Dates: start: 20150127, end: 20151119
  6. NEXIUM [Concomitant]
     Active Substance: ESOMEPRAZOLE MAGNESIUM
     Dosage: DAILY DOSE 20 MG
     Route: 048
     Dates: start: 20150108, end: 20151119
  7. NIKORANMART [Concomitant]
     Active Substance: NICORANDIL
     Dosage: DAILY DOSE 15 MG
     Route: 048
     Dates: start: 20150108, end: 20151119
  8. SENNOSIDE [Concomitant]
     Active Substance: SENNOSIDES
     Indication: CONSTIPATION
     Dosage: 24 MG, PRN
     Route: 048
     Dates: start: 20151110, end: 20151119

REACTIONS (2)
  - Potentiating drug interaction [None]
  - Cerebral haemorrhage [Fatal]

NARRATIVE: CASE EVENT DATE: 20150108
